FAERS Safety Report 15734470 (Version 4)
Quarter: 2019Q1

REPORT INFORMATION
  Report Type: Spontaneous
  Country: PL (occurrence: PL)
  Receive Date: 20181218
  Receipt Date: 20190214
  Transmission Date: 20190417
  Serious: Yes (Hospitalization)
  Sender: FDA-Public Use
  Company Number: PL-B.I. PHARMACEUTICALS,INC./RIDGEFIELD-2018-BI-059991

PATIENT
  Age: 75 Year
  Sex: Male

DRUGS (1)
  1. PRADAXA [Suspect]
     Active Substance: DABIGATRAN ETEXILATE MESYLATE
     Indication: ATRIAL FIBRILLATION
     Dosage: DOSE AND DAILY DOSE: 150
     Route: 065

REACTIONS (2)
  - Ischaemic stroke [Unknown]
  - Intentional product misuse [Unknown]
